FAERS Safety Report 6662335-1 (Version None)
Quarter: 2010Q1

REPORT INFORMATION
  Report Type: 
  Country: None (occurrence: None)
  Receive Date: 20100331
  Receipt Date: 20090609
  Transmission Date: 20100710
  Serious: No
  Sender: FDA-Public Use
  Company Number: US-ABBOTT-09P-163-0578849-00

PATIENT
  Sex: Female
  Weight: 58.112 kg

DRUGS (2)
  1. LUPRON DEPOT [Suspect]
     Indication: UTERINE LEIOMYOMA
     Route: 030
     Dates: start: 20070801, end: 20081001
  2. LUPRON DEPOT [Suspect]
     Route: 030
     Dates: start: 20081210, end: 20090318

REACTIONS (6)
  - BLADDER DISORDER [None]
  - DRUG INEFFECTIVE [None]
  - HAEMORRHAGE [None]
  - HEADACHE [None]
  - HOT FLUSH [None]
  - UTERINE LEIOMYOMA [None]
